FAERS Safety Report 15122543 (Version 10)
Quarter: 2021Q1

REPORT INFORMATION
  Report Type: Spontaneous
  Country: US (occurrence: US)
  Receive Date: 20180709
  Receipt Date: 20210104
  Transmission Date: 20210419
  Serious: Yes (Congenital Anomaly, Other)
  Sender: FDA-Public Use
  Company Number: PHEH2018US027503

PATIENT
  Age: 9 Month
  Sex: Male

DRUGS (2)
  1. ZOFRAN [Suspect]
     Active Substance: ONDANSETRON HYDROCHLORIDE
     Indication: FOETAL EXPOSURE DURING PREGNANCY
     Dosage: MOTHER DOSE: 04 MG, Q8H, PRN; 04 MG, Q4H
     Route: 064
  2. ZOFRAN [Suspect]
     Active Substance: ONDANSETRON HYDROCHLORIDE
     Indication: FOETAL EXPOSURE DURING PREGNANCY
     Route: 064

REACTIONS (50)
  - Cleft palate [Unknown]
  - Speech disorder [Unknown]
  - Nasal flaring [Unknown]
  - Vomiting [Unknown]
  - Ear pain [Unknown]
  - Jaundice neonatal [Unknown]
  - Hyperbilirubinaemia neonatal [Unknown]
  - Eczema [Unknown]
  - Rosacea [Unknown]
  - Constipation [Unknown]
  - Dermatitis [Unknown]
  - Epistaxis [Unknown]
  - Respiratory distress [Unknown]
  - Asthma [Unknown]
  - Limb injury [Unknown]
  - Pyrexia [Unknown]
  - Fine motor delay [Unknown]
  - Coordination abnormal [Unknown]
  - Bronchial hyperreactivity [Unknown]
  - Plagiocephaly [Unknown]
  - Bronchiolitis [Unknown]
  - Dyspnoea [Unknown]
  - Diarrhoea [Unknown]
  - Conjunctivitis [Unknown]
  - Cough [Unknown]
  - Fatigue [Unknown]
  - Viral rash [Unknown]
  - Dysmorphism [Unknown]
  - Hypoxia [Unknown]
  - Wheezing [Unknown]
  - Otitis media [Unknown]
  - Bronchospasm [Unknown]
  - Tonsillar hypertrophy [Unknown]
  - Upper respiratory tract infection [Unknown]
  - Abdominal pain [Unknown]
  - Pharyngitis [Unknown]
  - Developmental delay [Unknown]
  - Foetal exposure during pregnancy [Unknown]
  - Dermatitis diaper [Unknown]
  - Umbilical hernia [Unknown]
  - Tachycardia [Unknown]
  - Bronchitis [Unknown]
  - Adenoidal hypertrophy [Unknown]
  - Pain [Unknown]
  - Macrocephaly [Unknown]
  - Upper airway obstruction [Unknown]
  - Gross motor delay [Unknown]
  - Injury [Unknown]
  - Foot deformity [Unknown]
  - Irritability [Unknown]

NARRATIVE: CASE EVENT DATE: 20050328
